FAERS Safety Report 8054756-X (Version None)
Quarter: 2012Q2

REPORT INFORMATION
  Report Type: 
  Country: None (occurrence: None)
  Receive Date: 20120119
  Receipt Date: 20120112
  Transmission Date: 20120825
  Serious: Yes (Other)
  Sender: FDA-Public Use
  Company Number: FR-VERTEX PHARMACEUTICALS INC.-000000000000000066

PATIENT
  Sex: Female
  Weight: 65 kg

DRUGS (13)
  1. NEORECORMON [Concomitant]
     Indication: ANAEMIA
     Dosage: ^30,000^ (UNITS NOT PROVIDED)
     Dates: start: 20111112
  2. PROZAC [Concomitant]
     Indication: ANXIETY
     Dosage: ^20^ (UNITS NOT PROVIDED)
     Dates: start: 20070901
  3. ZOMIG [Concomitant]
     Indication: MIGRAINE
     Dosage: ^2.5^ (UNITS NOT PROVIDED)
     Dates: start: 20110815
  4. PEGASYS [Concomitant]
     Indication: HEPATITIS C
     Dates: start: 20110801
  5. IBUPROFEN [Concomitant]
     Indication: MIGRAINE
     Dosage: DOSAGE FORM: UNSPECIFIED. DOSE: ^400^ (UNITS NOT PROVIDED)
     Dates: start: 20110815
  6. COPEGUS [Concomitant]
     Indication: HEPATITIS C
     Dates: start: 20111024
  7. VX-950 [Suspect]
     Indication: HEPATITIS C
     Dosage: DOSAGE FORM: TABLET
     Route: 048
     Dates: start: 20110829, end: 20111121
  8. XYZAL [Concomitant]
     Indication: PRURITUS
     Dosage: ^5^ (UNITS NOT PROVIDED)
     Dates: start: 20110912
  9. REYATAZ [Concomitant]
     Indication: HIV INFECTION
     Dosage: ^300^ (UNITS NOT PROVIDED)
     Dates: start: 20110127
  10. NORVIR [Concomitant]
     Indication: HIV INFECTION
     Dosage: ^100^ (UNITS NOT PROVIDED)
     Dates: start: 20110127
  11. TRUVADA [Concomitant]
     Indication: HIV INFECTION
     Dosage: DOSAGE FORM: CAPSULE
     Dates: start: 20051114
  12. TITANOREINE [Concomitant]
     Indication: HAEMORRHOIDS
     Dosage: DOSAGE FORM: CREAM
     Dates: start: 20110912
  13. OTHER THERAPEUTIC DRUG [Concomitant]
     Indication: CONVULSION PROPHYLAXIS
     Dates: start: 19990205

REACTIONS (3)
  - ANAEMIA [None]
  - DYSPNOEA [None]
  - FATIGUE [None]
